FAERS Safety Report 12304693 (Version 2)
Quarter: 2016Q2

REPORT INFORMATION
  Report Type: Spontaneous
  Country: US (occurrence: US)
  Receive Date: 20160426
  Receipt Date: 20160505
  Transmission Date: 20160815
  Serious: Yes (Other)
  Sender: FDA-Public Use
  Company Number: US-RECKITT BENCKISER HEALTHCARE INT LIMITED-RB-84768-2016

PATIENT
  Age: 76 Year
  Sex: Male

DRUGS (1)
  1. CEPACOL [Suspect]
     Active Substance: BENZOCAINE
     Indication: PRODUCT USED FOR UNKNOWN INDICATION
     Dosage: 1 DF, EVERY TWO HOURS, TOOK A TOTAL OF 11 LOZENGES
     Route: 065
     Dates: start: 20160414

REACTIONS (4)
  - Eye swelling [Not Recovered/Not Resolved]
  - Diarrhoea [Recovered/Resolved]
  - Urticaria [Not Recovered/Not Resolved]
  - Visual impairment [Not Recovered/Not Resolved]

NARRATIVE: CASE EVENT DATE: 20160417
